FAERS Safety Report 11749342 (Version 21)
Quarter: 2017Q2

REPORT INFORMATION
  Report Type: Report from Study
  Country: CA (occurrence: CA)
  Receive Date: 20151118
  Receipt Date: 20170627
  Transmission Date: 20170829
  Serious: Yes (Hospitalization, Other)
  Sender: FDA-Public Use
  Company Number: PHHY2015CA145746

PATIENT
  Age: 37 Year
  Sex: Male

DRUGS (5)
  1. SANDOSTATIN LAR DEPOT [Suspect]
     Active Substance: OCTREOTIDE ACETATE
     Dosage: 20 MG, BIW (EVERY 2 WEEKS)
     Route: 030
     Dates: start: 20151204
  2. SANDOSTATIN LAR DEPOT [Suspect]
     Active Substance: OCTREOTIDE ACETATE
     Dosage: UNK
     Route: 030
     Dates: start: 20170425
  3. SANDOSTATIN LAR DEPOT [Suspect]
     Active Substance: OCTREOTIDE ACETATE
     Dosage: 40 MG, QMO (EVERY 4 WEEKS)
     Route: 030
     Dates: start: 20151030
  4. SANDOSTATIN LAR DEPOT [Suspect]
     Active Substance: OCTREOTIDE ACETATE
     Indication: PANCREATIC CARCINOMA
     Dosage: 30 MG, QMO (EVERY 4 WEEKS)
     Route: 030
     Dates: start: 20150911
  5. SANDOSTATIN LAR DEPOT [Suspect]
     Active Substance: OCTREOTIDE ACETATE
     Dosage: 30 MG, BIW (EVERY 2 WEEKS)
     Route: 030
     Dates: start: 20160212

REACTIONS (29)
  - Cellulitis [Unknown]
  - Pulmonary embolism [Unknown]
  - Muscle spasms [Unknown]
  - Arthralgia [Unknown]
  - Liver function test abnormal [Unknown]
  - Hypersomnia [Unknown]
  - Oxygen consumption decreased [Unknown]
  - Pain [Unknown]
  - Renal impairment [Recovering/Resolving]
  - Metastases to lung [Unknown]
  - Hepatic neoplasm [Unknown]
  - Device toxicity [Unknown]
  - Lower respiratory tract infection [Unknown]
  - Pallor [Unknown]
  - Vomiting [Unknown]
  - Blood glucose increased [Unknown]
  - Fatigue [Unknown]
  - Injection site pain [Recovered/Resolved]
  - Cough [Unknown]
  - Malignant neoplasm progression [Unknown]
  - Stress [Unknown]
  - Headache [Recovering/Resolving]
  - Inappropriate schedule of drug administration [Unknown]
  - Device occlusion [Unknown]
  - Malaise [Recovering/Resolving]
  - Restlessness [Recovered/Resolved]
  - Nausea [Unknown]
  - Injection site mass [Unknown]
  - Needle issue [Unknown]

NARRATIVE: CASE EVENT DATE: 201510
